FAERS Safety Report 10766151 (Version 2)
Quarter: 2016Q4

REPORT INFORMATION
  Report Type: Report from Study
  Country: US (occurrence: US)
  Receive Date: 20150205
  Receipt Date: 20161125
  Transmission Date: 20170206
  Serious: Yes (Disabling)
  Sender: FDA-Public Use
  Company Number: US-SA-2015SA012623

PATIENT
  Age: 63 Year
  Sex: Female

DRUGS (2)
  1. LANTUS SOLOSTAR [Suspect]
     Active Substance: INSULIN GLARGINE
     Indication: DIABETES MELLITUS
     Dosage: DOSE:50 UNIT(S)
     Route: 058
     Dates: start: 20081115
  2. SOLOSTAR [Concomitant]
     Active Substance: DEVICE
     Dates: start: 20081115

REACTIONS (2)
  - Visual impairment [Unknown]
  - Wheelchair user [Unknown]

NARRATIVE: CASE EVENT DATE: 20160901
